FAERS Safety Report 7935243-3 (Version None)
Quarter: 2011Q4

REPORT INFORMATION
  Report Type: 
  Country: None (occurrence: None)
  Receive Date: 20111122
  Receipt Date: 20111121
  Transmission Date: 20120403
  Serious: Yes (Life-Threatening, Other)
  Sender: FDA-Public Use
  Company Number: JP-BAYER-2011-112171

PATIENT
  Age: 73 Year
  Sex: Female

DRUGS (2)
  1. EOB PRIMOVIST [Suspect]
     Indication: NUCLEAR MAGNETIC RESONANCE IMAGING
     Dosage: 10 ML, ONCE
     Route: 042
     Dates: start: 20111121, end: 20111121
  2. EOB PRIMOVIST [Suspect]
     Indication: HEPATIC NEOPLASM MALIGNANT

REACTIONS (3)
  - CEREBRAL HAEMORRHAGE [None]
  - NAUSEA [None]
  - HEADACHE [None]
